FAERS Safety Report 22298350 (Version 90)
Quarter: 2025Q3

REPORT INFORMATION
  Report Type: Spontaneous
  Country: CA (occurrence: CA)
  Receive Date: 20230509
  Receipt Date: 20250704
  Transmission Date: 20251021
  Serious: Yes (Death, Life-Threatening, Hospitalization, Disabling, Congenital Anomaly, Other)
  Sender: BAUSCH AND LOMB
  Company Number: EU-ROCHE-2784989

PATIENT
  Age: 80 Year
  Sex: Male
  Weight: 69 kg

DRUGS (144)
  1. MOVIPREP [Suspect]
     Active Substance: ASCORBIC ACID\POLYETHYLENE GLYCOL 3350\POTASSIUM CHLORIDE\SODIUM ASCORBATE\SODIUM CHLORIDE\SODIUM SU
     Indication: Constipation
     Dosage: 17MG QD,17(UNK),17MG,QD,3MG,1/WK,ASCORBIC ACID;MACROGOL3350;KCL;SODIUM ASCORBATE;NACL;SODIUM SULFATE
     Route: 048
  2. MOVIPREP [Suspect]
     Active Substance: ASCORBIC ACID\POLYETHYLENE GLYCOL 3350\POTASSIUM CHLORIDE\SODIUM ASCORBATE\SODIUM CHLORIDE\SODIUM SU
     Indication: Off label use
     Route: 042
  3. MOVIPREP [Suspect]
     Active Substance: ASCORBIC ACID\POLYETHYLENE GLYCOL 3350\POTASSIUM CHLORIDE\SODIUM ASCORBATE\SODIUM CHLORIDE\SODIUM SU
     Route: 042
  4. JUBLIA [Suspect]
     Active Substance: EFINACONAZOLE
     Indication: Product used for unknown indication
     Route: 061
  5. JUBLIA [Suspect]
     Active Substance: EFINACONAZOLE
     Route: 061
  6. BUDESONIDE [Suspect]
     Active Substance: BUDESONIDE
     Indication: Product used for unknown indication
     Route: 065
  7. PHYTONADIONE [Suspect]
     Active Substance: PHYTONADIONE
     Indication: Vitamin supplementation
     Dosage: NOT SPECIFIED
     Route: 065
  8. PHYTONADIONE [Suspect]
     Active Substance: PHYTONADIONE
     Indication: Off label use
     Route: 065
  9. PHYTONADIONE [Suspect]
     Active Substance: PHYTONADIONE
     Indication: Product used for unknown indication
     Route: 065
  10. PHYTONADIONE [Suspect]
     Active Substance: PHYTONADIONE
     Route: 065
  11. PHYTONADIONE [Suspect]
     Active Substance: PHYTONADIONE
     Route: 065
  12. PHYTONADIONE [Suspect]
     Active Substance: PHYTONADIONE
     Route: 042
  13. PHYTONADIONE [Suspect]
     Active Substance: PHYTONADIONE
     Route: 042
  14. PHYTONADIONE [Suspect]
     Active Substance: PHYTONADIONE
     Route: 042
  15. PHYTONADIONE [Suspect]
     Active Substance: PHYTONADIONE
     Route: 042
  16. PHYTONADIONE [Suspect]
     Active Substance: PHYTONADIONE
     Route: 042
  17. PHYTONADIONE [Suspect]
     Active Substance: PHYTONADIONE
     Dosage: 4 ADMINISTRATIONS
     Route: 065
  18. PHYTONADIONE [Suspect]
     Active Substance: PHYTONADIONE
     Dosage: 4 ADMINISTRATIONS
     Route: 065
  19. PHYTONADIONE [Suspect]
     Active Substance: PHYTONADIONE
     Route: 065
  20. PHYTONADIONE [Suspect]
     Active Substance: PHYTONADIONE
     Dosage: 3 ADMINISTRATIONS
     Route: 017
  21. PHYTONADIONE [Suspect]
     Active Substance: PHYTONADIONE
     Route: 017
  22. PHYTONADIONE [Suspect]
     Active Substance: PHYTONADIONE
     Route: 065
  23. PHYTONADIONE [Suspect]
     Active Substance: PHYTONADIONE
     Route: 065
  24. PHYTONADIONE [Suspect]
     Active Substance: PHYTONADIONE
     Route: 065
  25. PHYTONADIONE [Suspect]
     Active Substance: PHYTONADIONE
     Dosage: 3 ADMINISTRATIONS
     Route: 017
  26. METRONIDAZOLE [Suspect]
     Active Substance: METRONIDAZOLE
     Indication: Off label use
     Route: 065
  27. METRONIDAZOLE [Suspect]
     Active Substance: METRONIDAZOLE
     Indication: Intentional product misuse
     Route: 065
  28. METRONIDAZOLE [Suspect]
     Active Substance: METRONIDAZOLE
     Indication: Bacterial infection
     Route: 048
  29. METRONIDAZOLE [Suspect]
     Active Substance: METRONIDAZOLE
     Indication: Product used for unknown indication
     Route: 065
  30. METRONIDAZOLE [Suspect]
     Active Substance: METRONIDAZOLE
     Dosage: 7 ADMINISTRATIONS
     Route: 048
  31. METRONIDAZOLE [Suspect]
     Active Substance: METRONIDAZOLE
     Route: 065
  32. METRONIDAZOLE [Suspect]
     Active Substance: METRONIDAZOLE
     Route: 048
  33. METRONIDAZOLE [Suspect]
     Active Substance: METRONIDAZOLE
     Dosage: 3 ADMINISTRATIONS
     Route: 048
  34. METRONIDAZOLE [Suspect]
     Active Substance: METRONIDAZOLE
     Dosage: 5 ADMINISTRATIONS
     Route: 048
  35. METRONIDAZOLE [Suspect]
     Active Substance: METRONIDAZOLE
     Dosage: 3 ADMINISTRATIONS
     Route: 065
  36. METRONIDAZOLE [Suspect]
     Active Substance: METRONIDAZOLE
     Dosage: 5 ADMINISTRATIONS
     Route: 065
  37. METRONIDAZOLE [Suspect]
     Active Substance: METRONIDAZOLE
     Route: 065
  38. METRONIDAZOLE [Suspect]
     Active Substance: METRONIDAZOLE
     Route: 065
  39. METRONIDAZOLE [Suspect]
     Active Substance: METRONIDAZOLE
     Route: 065
  40. METRONIDAZOLE [Suspect]
     Active Substance: METRONIDAZOLE
     Route: 048
  41. METRONIDAZOLE [Suspect]
     Active Substance: METRONIDAZOLE
     Route: 065
  42. METRONIDAZOLE [Suspect]
     Active Substance: METRONIDAZOLE
     Route: 065
  43. MESALAMINE [Suspect]
     Active Substance: MESALAMINE
     Indication: Product used for unknown indication
     Route: 065
  44. EFINACONAZOLE [Suspect]
     Active Substance: EFINACONAZOLE
     Indication: Product used for unknown indication
     Route: 061
  45. ALBUTEROL [Suspect]
     Active Substance: ALBUTEROL
     Indication: Chronic obstructive pulmonary disease
     Dosage: SALBUTAMOL SULFATE: 1. 1DF QID RESPIRATORY, 2. Q6HR RESPIRATORY, 3. Q6HR; OTHER, 4. Q6HR RESPIRATORY
     Route: 055
  46. ALBUTEROL [Suspect]
     Active Substance: ALBUTEROL
     Indication: Off label use
     Dosage: SALBUTAMOL SULFATE: 5. 1DF RESPIRATORY, 6. 4DF QD, 7. UNK, 8. 1DF INHALATION, 9. 4DF Q6HR, 10. QID
     Route: 055
  47. ALBUTEROL [Suspect]
     Active Substance: ALBUTEROL
     Indication: Intentional product misuse
     Route: 065
  48. ALBUTEROL [Suspect]
     Active Substance: ALBUTEROL
     Indication: Prophylaxis
     Route: 065
  49. ALBUTEROL [Suspect]
     Active Substance: ALBUTEROL
     Indication: Asthma
     Route: 065
  50. ALBUTEROL [Suspect]
     Active Substance: ALBUTEROL
     Indication: Thrombosis
     Route: 065
  51. ALBUTEROL [Suspect]
     Active Substance: ALBUTEROL
     Indication: Product used for unknown indication
     Dosage: 4 ADMINISTRATIONS
     Route: 065
  52. ALBUTEROL [Suspect]
     Active Substance: ALBUTEROL
     Dosage: 2 ADMINISTRATIONS
     Route: 055
  53. ALBUTEROL [Suspect]
     Active Substance: ALBUTEROL
     Dosage: 2 ADMINISTRATIONS
     Route: 055
  54. ALBUTEROL [Suspect]
     Active Substance: ALBUTEROL
     Route: 055
  55. ALBUTEROL [Suspect]
     Active Substance: ALBUTEROL
     Dosage: 8 ADMINISTRATIONS
     Route: 065
  56. ALBUTEROL [Suspect]
     Active Substance: ALBUTEROL
     Dosage: 5 ADMINISTRATIONS
     Route: 065
  57. ALBUTEROL [Suspect]
     Active Substance: ALBUTEROL
     Route: 055
  58. ALBUTEROL [Suspect]
     Active Substance: ALBUTEROL
     Route: 050
  59. ALBUTEROL [Suspect]
     Active Substance: ALBUTEROL
     Dosage: 3 ADMINISTRATIONS
     Route: 065
  60. ALBUTEROL [Suspect]
     Active Substance: ALBUTEROL
     Route: 065
  61. ALBUTEROL [Suspect]
     Active Substance: ALBUTEROL
     Route: 065
  62. ALBUTEROL [Suspect]
     Active Substance: ALBUTEROL
     Dosage: 2 ADMINISTRATIONS
     Route: 065
  63. ALBUTEROL [Suspect]
     Active Substance: ALBUTEROL
     Dosage: 2 ADMINISTRATIONS
     Route: 065
  64. ALBUTEROL [Suspect]
     Active Substance: ALBUTEROL
     Dosage: 3 ADMINISTRATIONS
     Route: 065
  65. ALBUTEROL [Suspect]
     Active Substance: ALBUTEROL
     Dosage: 2 ADMINISTRATIONS
     Route: 065
  66. ALBUTEROL [Suspect]
     Active Substance: ALBUTEROL
     Dosage: 2 ADMINISTRATIONS
     Route: 050
  67. ALBUTEROL [Suspect]
     Active Substance: ALBUTEROL
     Route: 065
  68. ALBUTEROL [Suspect]
     Active Substance: ALBUTEROL
     Dosage: DOSAGE FORM: NOT SPECIFIED
     Route: 065
  69. ALBUTEROL [Suspect]
     Active Substance: ALBUTEROL
     Dosage: SALBUTAMOL, DOSAGE FORM: NOT SPECIFIED
     Route: 065
  70. ALBUTEROL [Suspect]
     Active Substance: ALBUTEROL
     Route: 065
  71. ALBUTEROL [Suspect]
     Active Substance: ALBUTEROL
     Route: 050
  72. ALBUTEROL [Suspect]
     Active Substance: ALBUTEROL
     Route: 065
  73. ALBUTEROL [Suspect]
     Active Substance: ALBUTEROL
     Dosage: DOSAGE FORM: NOT SPECIFIED, 4 ADMINISTRATIONS
     Route: 065
  74. ALBUTEROL [Suspect]
     Active Substance: ALBUTEROL
     Dosage: DOSAGE FORM: NOT SPECIFIED
     Route: 065
  75. ALBUTEROL [Suspect]
     Active Substance: ALBUTEROL
     Dosage: SALBUTAMOL, DOSAGE FORM: NOT SPECIFIED, SALBUTAMOL SULFATE-4 ADMINISTRATIONS
     Route: 065
  76. ALBUTEROL [Suspect]
     Active Substance: ALBUTEROL
     Dosage: SALBUTAMOL, DOSAGE FORM: NOT SPECIFIED
     Route: 065
  77. ALBUTEROL [Suspect]
     Active Substance: ALBUTEROL
     Dosage: SALBUTAMOL, DOSAGE FORM: NOT SPECIFIED, 4 ADMINISTRATIONS
     Route: 065
  78. ALBUTEROL [Suspect]
     Active Substance: ALBUTEROL
     Dosage: SALBUTAMOL, DOSAGE FORM: NOT SPECIFIED, 2 ADMINISTRATIONS
     Route: 065
  79. ALBUTEROL [Suspect]
     Active Substance: ALBUTEROL
     Dosage: DOSAGE FORM: NOT SPECIFIED, 2 ADMINISTRATIONS
     Route: 065
  80. ALBUTEROL [Suspect]
     Active Substance: ALBUTEROL
     Route: 065
  81. ALBUTEROL [Suspect]
     Active Substance: ALBUTEROL
     Route: 065
  82. ALBUTEROL [Suspect]
     Active Substance: ALBUTEROL
     Route: 065
  83. ALBUTEROL [Suspect]
     Active Substance: ALBUTEROL
     Route: 050
  84. ALBUTEROL [Suspect]
     Active Substance: ALBUTEROL
     Route: 065
  85. ALBUTEROL [Suspect]
     Active Substance: ALBUTEROL
     Route: 065
  86. IPRATROPIUM [Suspect]
     Active Substance: IPRATROPIUM
     Indication: Dyspnoea
     Dosage: 2. RESPIRATORY (INHALATION) 1 IN 1D 1DF 3. RESPIRATORY (INHALATION) 1 IN 6 HR.
     Route: 055
  87. IPRATROPIUM [Suspect]
     Active Substance: IPRATROPIUM
     Indication: Sleep disorder therapy
     Dosage: 4. 1 UNK INHA 5. OTHER, 6. ENDOSINUSIAL
     Route: 065
  88. IPRATROPIUM [Suspect]
     Active Substance: IPRATROPIUM
     Indication: Intentional product misuse
     Route: 050
  89. IPRATROPIUM [Suspect]
     Active Substance: IPRATROPIUM
     Indication: Off label use
     Dosage: 3 ADMINISTRATIONS
     Route: 065
  90. IPRATROPIUM [Suspect]
     Active Substance: IPRATROPIUM
     Indication: Product used for unknown indication
     Route: 055
  91. IPRATROPIUM [Suspect]
     Active Substance: IPRATROPIUM
     Route: 055
  92. IPRATROPIUM [Suspect]
     Active Substance: IPRATROPIUM
     Dosage: 2 ADMINISTRATIONS
     Route: 065
  93. IPRATROPIUM [Suspect]
     Active Substance: IPRATROPIUM
     Dosage: 3 ADMINISTRATIONS
     Route: 065
  94. IPRATROPIUM [Suspect]
     Active Substance: IPRATROPIUM
     Route: 065
  95. IPRATROPIUM [Suspect]
     Active Substance: IPRATROPIUM
     Route: 050
  96. IPRATROPIUM [Suspect]
     Active Substance: IPRATROPIUM
     Dosage: 2 ADMINISTRATIONS
     Route: 050
  97. IPRATROPIUM [Suspect]
     Active Substance: IPRATROPIUM
     Route: 050
  98. IPRATROPIUM [Suspect]
     Active Substance: IPRATROPIUM
     Route: 065
  99. IPRATROPIUM [Suspect]
     Active Substance: IPRATROPIUM
     Dosage: 2 ADMINISTRATIONS
     Route: 065
  100. IPRATROPIUM [Suspect]
     Active Substance: IPRATROPIUM
     Route: 065
  101. IPRATROPIUM [Suspect]
     Active Substance: IPRATROPIUM
     Route: 065
  102. IPRATROPIUM [Suspect]
     Active Substance: IPRATROPIUM
     Dosage: INTRA-NASAL (2 ADMINISTRATIONS)
     Route: 065
  103. IPRATROPIUM [Suspect]
     Active Substance: IPRATROPIUM
     Dosage: INTRA-NASAL
     Route: 065
  104. IPRATROPIUM [Suspect]
     Active Substance: IPRATROPIUM
     Route: 065
  105. NITROGLYCERIN [Suspect]
     Active Substance: NITROGLYCERIN
     Indication: Product used for unknown indication
     Route: 065
  106. HYDROCORTISONE ACETATE [Suspect]
     Active Substance: HYDROCORTISONE ACETATE
     Indication: Product used for unknown indication
     Route: 065
  107. HYDROCORTISONE ACETATE [Suspect]
     Active Substance: HYDROCORTISONE ACETATE
     Route: 065
  108. ALBUTEROL SULFATE [Suspect]
     Active Substance: ALBUTEROL SULFATE
     Indication: Asthma
     Route: 065
  109. IPRATROPIUM BROMIDE [Suspect]
     Active Substance: IPRATROPIUM BROMIDE
     Indication: Sleep disorder therapy
     Dosage: INTRA-NASAL
     Route: 065
  110. IPRATROPIUM BROMIDE [Suspect]
     Active Substance: IPRATROPIUM BROMIDE
     Indication: Intentional product misuse
     Route: 065
  111. IPRATROPIUM BROMIDE [Suspect]
     Active Substance: IPRATROPIUM BROMIDE
     Indication: Dyspnoea
     Route: 050
  112. IPRATROPIUM BROMIDE [Suspect]
     Active Substance: IPRATROPIUM BROMIDE
     Indication: Somnolence
     Route: 065
  113. IPRATROPIUM BROMIDE [Suspect]
     Active Substance: IPRATROPIUM BROMIDE
     Indication: Product used for unknown indication
     Dosage: ADMINISTERED TWO TIMES
     Route: 065
  114. IPRATROPIUM BROMIDE [Suspect]
     Active Substance: IPRATROPIUM BROMIDE
     Route: 065
  115. IPRATROPIUM BROMIDE [Suspect]
     Active Substance: IPRATROPIUM BROMIDE
     Route: 065
  116. IPRATROPIUM BROMIDE [Suspect]
     Active Substance: IPRATROPIUM BROMIDE
     Dosage: 2 ADMINISTRATIONS
     Route: 065
  117. IPRATROPIUM BROMIDE [Suspect]
     Active Substance: IPRATROPIUM BROMIDE
     Route: 065
  118. IPRATROPIUM BROMIDE [Suspect]
     Active Substance: IPRATROPIUM BROMIDE
     Dosage: 3 ADMINISTRATIONS
     Route: 065
  119. IPRATROPIUM BROMIDE [Suspect]
     Active Substance: IPRATROPIUM BROMIDE
     Dosage: 6 ADMINISTRATIONS
     Route: 065
  120. IPRATROPIUM BROMIDE [Suspect]
     Active Substance: IPRATROPIUM BROMIDE
     Route: 065
  121. IPRATROPIUM BROMIDE [Suspect]
     Active Substance: IPRATROPIUM BROMIDE
     Route: 050
  122. IPRATROPIUM BROMIDE [Suspect]
     Active Substance: IPRATROPIUM BROMIDE
     Dosage: 3 ADMINISTRATIONS
     Route: 050
  123. IPRATROPIUM BROMIDE [Suspect]
     Active Substance: IPRATROPIUM BROMIDE
     Dosage: 4 ADMINISTRATIONS
     Route: 065
  124. IPRATROPIUM BROMIDE [Suspect]
     Active Substance: IPRATROPIUM BROMIDE
     Dosage: INHALATION
     Route: 065
  125. IPRATROPIUM BROMIDE [Suspect]
     Active Substance: IPRATROPIUM BROMIDE
     Route: 065
  126. IPRATROPIUM BROMIDE [Suspect]
     Active Substance: IPRATROPIUM BROMIDE
     Dosage: 2 ADMINISTRATIONS
     Route: 065
  127. IPRATROPIUM BROMIDE [Suspect]
     Active Substance: IPRATROPIUM BROMIDE
     Route: 050
  128. IPRATROPIUM BROMIDE [Suspect]
     Active Substance: IPRATROPIUM BROMIDE
     Route: 065
  129. IPRATROPIUM BROMIDE [Suspect]
     Active Substance: IPRATROPIUM BROMIDE
     Route: 048
  130. IPRATROPIUM BROMIDE [Suspect]
     Active Substance: IPRATROPIUM BROMIDE
     Route: 065
  131. IPRATROPIUM BROMIDE [Suspect]
     Active Substance: IPRATROPIUM BROMIDE
     Route: 050
  132. IPRATROPIUM BROMIDE [Suspect]
     Active Substance: IPRATROPIUM BROMIDE
     Dosage: 2 ADMINISTRATIONS
     Route: 065
  133. IPRATROPIUM BROMIDE [Suspect]
     Active Substance: IPRATROPIUM BROMIDE
     Route: 065
  134. IPRATROPIUM BROMIDE [Suspect]
     Active Substance: IPRATROPIUM BROMIDE
     Route: 065
  135. IPRATROPIUM BROMIDE [Suspect]
     Active Substance: IPRATROPIUM BROMIDE
     Route: 065
  136. IPRATROPIUM BROMIDE [Suspect]
     Active Substance: IPRATROPIUM BROMIDE
     Route: 065
  137. IPRATROPIUM BROMIDE [Suspect]
     Active Substance: IPRATROPIUM BROMIDE
     Route: 050
  138. IPRATROPIUM BROMIDE [Suspect]
     Active Substance: IPRATROPIUM BROMIDE
     Route: 065
  139. IPRATROPIUM BROMIDE [Suspect]
     Active Substance: IPRATROPIUM BROMIDE
     Route: 065
  140. IPRATROPIUM BROMIDE [Suspect]
     Active Substance: IPRATROPIUM BROMIDE
     Route: 065
  141. RAMIPRIL [Suspect]
     Active Substance: RAMIPRIL
     Indication: Prophylaxis
     Route: 065
  142. RAMIPRIL [Suspect]
     Active Substance: RAMIPRIL
     Indication: Asthma
     Route: 048
  143. CALCIUM [Suspect]
     Active Substance: CALCIUM
     Indication: Intentional product misuse
     Route: 065
  144. CALCIUM [Suspect]
     Active Substance: CALCIUM
     Indication: Product used for unknown indication

REACTIONS (73)
  - Anticoagulant therapy [Fatal]
  - Death [Fatal]
  - Gastrointestinal disorder [Fatal]
  - Sepsis [Fatal]
  - Multiple organ dysfunction syndrome [Fatal]
  - General physical health deterioration [Fatal]
  - Stress [Fatal]
  - Condition aggravated [Fatal]
  - Liver disorder [Fatal]
  - Hyperphosphataemia [Fatal]
  - Somnolence [Fatal]
  - Anaemia [Fatal]
  - Blood creatinine increased [Fatal]
  - Blood test abnormal [Fatal]
  - Lung disorder [Fatal]
  - End stage renal disease [Fatal]
  - Respiratory symptom [Fatal]
  - Lower respiratory tract infection [Fatal]
  - Musculoskeletal stiffness [Fatal]
  - Blood calcium increased [Fatal]
  - Pyrexia [Fatal]
  - Transaminases increased [Fatal]
  - Cardiovascular disorder [Fatal]
  - Headache [Fatal]
  - Myasthenia gravis [Fatal]
  - Hyperlipidaemia [Fatal]
  - Gout [Fatal]
  - Drug therapy [Fatal]
  - Diabetes mellitus [Fatal]
  - Thrombosis [Fatal]
  - Sleep disorder [Fatal]
  - Analgesic therapy [Fatal]
  - Neuralgia [Fatal]
  - Bacterial infection [Fatal]
  - Swelling [Fatal]
  - Antacid therapy [Fatal]
  - Drug hypersensitivity [Fatal]
  - Pulmonary embolism [Fatal]
  - Activated partial thromboplastin time prolonged [Fatal]
  - Hypophosphataemia [Fatal]
  - Tremor [Fatal]
  - Oedema peripheral [Fatal]
  - Sleep disorder therapy [Fatal]
  - Ulcer [Fatal]
  - Hyponatraemia [Fatal]
  - Drug intolerance [Fatal]
  - Hypertension [Fatal]
  - Hypercholesterolaemia [Fatal]
  - Benign prostatic hyperplasia [Fatal]
  - Coronary artery disease [Fatal]
  - Congenital hiatus hernia [Fatal]
  - Malignant melanoma stage 0 [Fatal]
  - Troponin increased [Fatal]
  - Joint injury [Fatal]
  - Breath sounds abnormal [Fatal]
  - Pleuritic pain [Fatal]
  - Micturition urgency [Fatal]
  - Transient ischaemic attack [Fatal]
  - Full blood count abnormal [Fatal]
  - Chronic obstructive pulmonary disease [Fatal]
  - Aspiration [Fatal]
  - Asthenia [Fatal]
  - Asthma [Fatal]
  - Bronchopulmonary aspergillosis allergic [Fatal]
  - Fatigue [Fatal]
  - Pain [Fatal]
  - Upper respiratory tract infection [Fatal]
  - Drug ineffective [Fatal]
  - Product use in unapproved indication [Fatal]
  - Product dose omission issue [Fatal]
  - Intentional product misuse [Fatal]
  - Off label use [Fatal]
  - Incorrect route of product administration [Fatal]

NARRATIVE: CASE EVENT DATE: 20200101
